FAERS Safety Report 22631858 (Version 1)
Quarter: 2023Q2

REPORT INFORMATION
  Report Type: Spontaneous
  Country: CN (occurrence: CN)
  Receive Date: 20230623
  Receipt Date: 20230623
  Transmission Date: 20230721
  Serious: Yes (Other)
  Sender: FDA-Public Use
  Company Number: CN-002147023-NVSC2023CN138589

PATIENT
  Age: 73 Year
  Sex: Female

DRUGS (17)
  1. ENTRESTO [Suspect]
     Active Substance: SACUBITRIL\VALSARTAN
     Indication: Hypertension
     Dosage: 50 MG, BID (STARTED ON 30 MAY)
     Route: 048
  2. ATORVASTATIN CALCIUM [Suspect]
     Active Substance: ATORVASTATIN CALCIUM
     Indication: Product used for unknown indication
     Dosage: 1 DOSAGE FORM, QD (28 TABLETS, STARTED ON 12 MAY)
     Route: 048
  3. VALSARTAN [Suspect]
     Active Substance: VALSARTAN
     Indication: Product used for unknown indication
     Dosage: 1 DOSAGE FORM, QD (7 CAPSULES, STARTED ON 12 MAR)
     Route: 048
  4. ASPIRIN [Concomitant]
     Active Substance: ASPIRIN
     Indication: Product used for unknown indication
     Dosage: UNK, QD (30 TABLETS, 0.1 G/TIME,TIME IN FORCE -10:08 OF 12-MAR )
     Route: 048
  5. ASPIRIN [Concomitant]
     Active Substance: ASPIRIN
     Dosage: UNK, QD (30 TABLETS, 0.1 G/TIME,TIME IN FORCE 14:48 OF 30-MAY
     Route: 048
  6. AMLODIPINE BESYLATE [Concomitant]
     Active Substance: AMLODIPINE BESYLATE
     Indication: Product used for unknown indication
     Dosage: UNK, QD (BASIC) 5 MG21 TABLETS (4+7), 5 MG/TIME)
     Route: 048
  7. VALSARTAN [Concomitant]
     Active Substance: VALSARTAN
     Indication: Product used for unknown indication
     Dosage: UNK, QD (7CAPSULES, 80MG/TIME)
     Route: 048
  8. REPAGLINIDE [Concomitant]
     Active Substance: REPAGLINIDE
     Indication: Product used for unknown indication
     Dosage: UNK, TID (60 TABLETS (4+7), 1  MG/TIME,TIME IN FORCE 10:08 OF 12-MAR
     Route: 048
  9. REPAGLINIDE [Concomitant]
     Active Substance: REPAGLINIDE
     Dosage: UNK, TID (60 TABLETS (4+7), 1  MG/TIME,TIME IN FORCE 14:48 OF 30-MAY
     Route: 048
  10. METFORMIN HYDROCHLORIDE [Concomitant]
     Active Substance: METFORMIN HYDROCHLORIDE
     Indication: Product used for unknown indication
     Dosage: UNK, BID (SUSTAINED-RELEASE TABLETS 64 TABLETS (4+7), 0.5 G/TIME,TIME IN FORCE 10:08 OF 12-MAR
     Route: 048
  11. METFORMIN HYDROCHLORIDE [Concomitant]
     Active Substance: METFORMIN HYDROCHLORIDE
     Dosage: UNK UNK, BID ((4+7) 0.25 G,100 TABLETS, 0.5 G/TIME ,TIME IN FORCE 14:48 OF 30-MAY
     Route: 048
  12. SALINE [Concomitant]
     Active Substance: SODIUM CHLORIDE
     Indication: Product used for unknown indication
     Dosage: UNK, QD (NORMAL SALINE SOFT BAG, 250 ML/TIM (VENOUS TRANSFUSIONE),TIME IN FORCE 10:08 OF 12-MAR
     Route: 042
  13. PENTOXIFYLLINE [Concomitant]
     Active Substance: PENTOXIFYLLINE
     Indication: Product used for unknown indication
     Dosage: UNK, QD ( 0.1 G/5 ML, 0.1 G/TIME ,(VENOUS TRANSFUSION)TIME IN FORCE 10:08 OF 12-MAR
     Route: 065
  14. NICOTINIC ACID [Concomitant]
     Active Substance: NIACIN
     Indication: Product used for unknown indication
     Dosage: UNK (25 G/TIME,30DRP/MIN,(VENOUS TRANSFUSION),TIME IN FORCE 10:08 OF 12-MAR
     Route: 065
  15. GINKGO [Concomitant]
     Active Substance: GINKGO
     Indication: Product used for unknown indication
     Dosage: UNK, TID (DROP PILL (BASIC) 63 MG,100 PILLS,  300 MG/TIME TIME OF FORCE 07:59 OF 17-MAR
     Route: 048
  16. SODIUM CHLORIDE [Concomitant]
     Active Substance: SODIUM CHLORIDE
     Indication: Product used for unknown indication
     Dosage: UNK,QD, ((BASIC) SOFT BAG 250 ML, 250 ML/TIME,(VENOUS TRANSFUSION),TIME IN FORCE 14:48 OF 30-MAY
     Route: 042
  17. ADENOSINE [Concomitant]
     Active Substance: ADENOSINE
     Indication: Product used for unknown indication
     Dosage: UNK, QD (20 MG/TIME, (VENOUS TRANSFUSION),TIME IN FORCE 14:48 OF 30-MAYION)
     Route: 065

REACTIONS (4)
  - Angioedema [Recovering/Resolving]
  - Inappropriate schedule of product administration [Unknown]
  - Contraindicated product administered [Unknown]
  - Underdose [Unknown]
